FAERS Safety Report 18437973 (Version 2)
Quarter: 2021Q1

REPORT INFORMATION
  Report Type: Spontaneous
  Country: US (occurrence: US)
  Receive Date: 20201029
  Receipt Date: 20210217
  Transmission Date: 20210419
  Serious: No
  Sender: FDA-Public Use
  Company Number: US-AKCEA THERAPEUTICS-2020IS001400

PATIENT
  Age: 44 Year
  Sex: Male

DRUGS (2)
  1. TEGSEDI [Suspect]
     Active Substance: INOTERSEN SODIUM
     Indication: HEREDITARY NEUROPATHIC AMYLOIDOSIS
     Route: 058
  2. ISSD (INTEGRATED SYRINGE SAFETY DEVICE) [Suspect]
     Active Substance: DEVICE

REACTIONS (12)
  - Urine protein/creatinine ratio abnormal [Not Recovered/Not Resolved]
  - Creatinine urine abnormal [Unknown]
  - Glomerular filtration rate decreased [Unknown]
  - Proteinuria [Not Recovered/Not Resolved]
  - Urine abnormality [Unknown]
  - Urinary occult blood positive [Unknown]
  - Bacterial test positive [Unknown]
  - Crystal urine present [Unknown]
  - Blood creatinine increased [Not Recovered/Not Resolved]
  - Protein total abnormal [Not Recovered/Not Resolved]
  - Urinary casts [Unknown]
  - Platelet count decreased [Unknown]

NARRATIVE: CASE EVENT DATE: 20200825
